FAERS Safety Report 5896297-1 (Version None)
Quarter: 2008Q3

REPORT INFORMATION
  Report Type: 
  Country: None (occurrence: None)
  Receive Date: 20080924
  Receipt Date: 20080627
  Transmission Date: 20090109
  Serious: Yes (Other)
  Sender: FDA-Public Use
  Company Number: US-ASTRAZENECA-2007UW19154

PATIENT
  Age: 18774 Day
  Sex: Female
  Weight: 89.4 kg

DRUGS (12)
  1. SEROQUEL [Suspect]
     Indication: ANXIETY
     Dosage: 200 TO 400 MG
     Route: 048
     Dates: start: 20010101
  2. SEROQUEL [Suspect]
     Indication: DEPRESSION
     Dosage: 200 TO 400 MG
     Route: 048
     Dates: start: 20010101
  3. SEROQUEL [Suspect]
     Indication: SCHIZOPHRENIA
     Dosage: 200 TO 400 MG
     Route: 048
     Dates: start: 20010101
  4. SEROQUEL [Suspect]
     Dosage: 100 MG - 400 MG
     Route: 048
     Dates: start: 20020419
  5. SEROQUEL [Suspect]
     Dosage: 100 MG - 400 MG
     Route: 048
     Dates: start: 20020419
  6. SEROQUEL [Suspect]
     Dosage: 100 MG - 400 MG
     Route: 048
     Dates: start: 20020419
  7. ZYPREXA [Concomitant]
     Dates: start: 20000101, end: 20020101
  8. ZOLOFT [Concomitant]
     Route: 048
     Dates: start: 20040821, end: 20070916
  9. DESYREL [Concomitant]
     Route: 048
  10. DISTRIL [Concomitant]
  11. TRAZODONE HCL [Concomitant]
     Dosage: 100 MG - 150 MG
     Dates: start: 20020215, end: 20070905
  12. WELLBUTRIN [Concomitant]
     Dates: start: 20040423

REACTIONS (2)
  - DIABETES MELLITUS [None]
  - SUICIDAL BEHAVIOUR [None]
